FAERS Safety Report 8500827-0 (Version None)
Quarter: 2012Q3

REPORT INFORMATION
  Report Type: 
  Country: None (occurrence: None)
  Receive Date: 20120710
  Receipt Date: 20120703
  Transmission Date: 20120928
  Serious: Yes (Life-Threatening)
  Sender: FDA-Public Use
  Company Number: CN-ROXANE LABORATORIES, INC.-2012-RO-01516RO

PATIENT
  Age: 42 Year

DRUGS (3)
  1. PROMETHAZINE [Suspect]
  2. DIAZEPAM [Suspect]
  3. HEROIN [Suspect]

REACTIONS (1)
  - MULTIPLE DRUG OVERDOSE [None]
